FAERS Safety Report 5103569-7 (Version None)
Quarter: 2006Q3

REPORT INFORMATION
  Report Type: 
  Country: None (occurrence: None)
  Receive Date: 20060913
  Receipt Date: 20060907
  Transmission Date: 20061208
  Serious: Yes (Other)
  Sender: FDA-Public Use
  Company Number: BE-ROCHE-462228

PATIENT
  Age: 20 Year
  Sex: Male

DRUGS (1)
  1. ACCUTANE [Suspect]
     Indication: ACNE
     Dosage: THE DOSE WAS CALCULATED RELATIVE TO THE PATIENT'S WEIGHT.
     Route: 048
     Dates: start: 20060615, end: 20060615

REACTIONS (2)
  - TENDON RUPTURE [None]
  - TENDONITIS [None]
